FAERS Safety Report 5662655-3 (Version None)
Quarter: 2008Q1

REPORT INFORMATION
  Report Type: 
  Country: None (occurrence: None)
  Receive Date: 20080313
  Receipt Date: 20080303
  Transmission Date: 20080703
  Serious: Yes (Other)
  Sender: FDA-Public Use
  Company Number: TR-ROCHE-551911

PATIENT
  Age: 41 Year
  Sex: Female

DRUGS (1)
  1. ROACCUTANE [Suspect]
     Dosage: ALSO REPORTED AS 1 MG/KG.
     Route: 048
     Dates: start: 20020101, end: 20020401

REACTIONS (1)
  - DEMYELINATION [None]
